FAERS Safety Report 7284242-6 (Version None)
Quarter: 2011Q1

REPORT INFORMATION
  Report Type: 
  Country: None (occurrence: None)
  Receive Date: 20110209
  Receipt Date: 20110204
  Transmission Date: 20110831
  Serious: Yes (Other)
  Sender: FDA-Public Use
  Company Number: CA-US-EMD SERONO, INC.-7030092

PATIENT
  Sex: Female

DRUGS (8)
  1. REBIF [Suspect]
     Indication: MULTIPLE SCLEROSIS
     Dates: start: 20101029
  2. VIT B12 (VITAMIN B12) [Concomitant]
  3. LITHIUM CARBONATE [Concomitant]
  4. ELMIRON (BLADDER) [Concomitant]
  5. REBIF [Suspect]
  6. REBIF [Suspect]
  7. CELEXA [Concomitant]
  8. NOVATRIMEL DS [Concomitant]

REACTIONS (8)
  - ABASIA [None]
  - BALANCE DISORDER [None]
  - INJECTION SITE ERYTHEMA [None]
  - MOBILITY DECREASED [None]
  - MUSCULAR WEAKNESS [None]
  - ASTHENIA [None]
  - DYSSTASIA [None]
  - INJECTION SITE PRURITUS [None]
